FAERS Safety Report 9380387 (Version 1)
Quarter: 2013Q3

REPORT INFORMATION
  Report Type: Report from Study
  Country: US (occurrence: US)
  Receive Date: 20130702
  Receipt Date: 20130702
  Transmission Date: 20140515
  Serious: Yes (Other)
  Sender: FDA-Public Use
  Company Number: US-BAYER-2013-078943

PATIENT
  Age: 86 Year
  Sex: 0

DRUGS (6)
  1. ASPIRIN [Suspect]
     Indication: ANTICOAGULANT THERAPY
     Dosage: 81 MG DAILY, 7 DAYS BEFORE SURGERY
  2. ASPIRIN [Suspect]
     Indication: ANTIPLATELET THERAPY
  3. ACETYLSALICYLIC ACID [Suspect]
     Indication: ANTIPLATELET THERAPY
     Dosage: 325 MG, UNK
  4. ACETYLSALICYLIC ACID [Suspect]
     Indication: ANTICOAGULANT THERAPY
  5. HEPARIN [Suspect]
     Indication: ANTIPLATELET THERAPY
     Dosage: 15000 U, UNK
     Route: 042
  6. HEPARIN [Suspect]
     Indication: ANTICOAGULANT THERAPY

REACTIONS (2)
  - Extradural haematoma [Recovered/Resolved]
  - Paraplegia [Recovered/Resolved]
